FAERS Safety Report 8515004-7 (Version None)
Quarter: 2012Q3

REPORT INFORMATION
  Report Type: 
  Country: None (occurrence: None)
  Receive Date: 20120705
  Receipt Date: 20120625
  Transmission Date: 20120928
  Serious: Yes (Other)
  Sender: FDA-Public Use
  Company Number: 2010004934

PATIENT
  Age: 70 Year
  Sex: Female

DRUGS (2)
  1. TARCEVA [Suspect]
     Indication: LUNG NEOPLASM MALIGNANT
     Dosage: 100 MG, UID/QD, ORAL 25 MG, UID/QD, ORAL
     Route: 048
     Dates: start: 20101103
  2. TARCEVA [Suspect]
     Indication: BRONCHIAL CARCINOMA
     Dosage: 100 MG, UID/QD, ORAL 25 MG, UID/QD, ORAL
     Route: 048
     Dates: start: 20101103

REACTIONS (4)
  - INCORRECT DOSE ADMINISTERED [None]
  - BLOOD COUNT ABNORMAL [None]
  - DIARRHOEA [None]
  - STOMATITIS [None]
